FAERS Safety Report 6692361-8 (Version None)
Quarter: 2010Q2

REPORT INFORMATION
  Report Type: 
  Country: None (occurrence: None)
  Receive Date: 20100419
  Receipt Date: 20100201
  Transmission Date: 20101027
  Serious: Yes (Other)
  Sender: FDA-Public Use
  Company Number: 2010AP000049

PATIENT
  Age: 67 Year
  Sex: Male

DRUGS (5)
  1. FENOFIBRATE [Suspect]
     Indication: GASTROOESOPHAGEAL REFLUX DISEASE
     Dosage: 160 MG;TAB;PO;QD 15 MG;TAB;PO;QD
     Route: 048
     Dates: end: 20091225
  2. FENOFIBRATE [Suspect]
     Indication: HYPERLIPIDAEMIA
     Dosage: 160 MG;TAB;PO;QD 15 MG;TAB;PO;QD
     Route: 048
     Dates: end: 20091225
  3. SILDENAFIL CITRATRE (SILDENAFIL CITRATE) [Concomitant]
  4. EZETIMIBE [Concomitant]
  5. CLOPIDOGREL BISULFATE [Concomitant]

REACTIONS (2)
  - MUSCLE SPASMS [None]
  - RHABDOMYOLYSIS [None]
